FAERS Safety Report 10810633 (Version 1)
Quarter: 2015Q1

REPORT INFORMATION
  Report Type: Spontaneous
  Country: US (occurrence: None)
  Receive Date: 20150212
  Receipt Date: 20150212
  Transmission Date: 20150721
  Serious: No
  Sender: FDA-Public Use
  Company Number: None

PATIENT
  Age: 31 Year
  Sex: Female
  Weight: 79.38 kg

DRUGS (2)
  1. CLARITHROMYCIN. [Suspect]
     Active Substance: CLARITHROMYCIN
     Dosage: 1 PILL ONCE EVERY 12 HOUR TAKEN BY MOUTH
     Route: 048
     Dates: start: 20150209, end: 20150210
  2. PREDNISONE. [Concomitant]
     Active Substance: PREDNISONE

REACTIONS (4)
  - Emotional disorder [None]
  - Pain in extremity [None]
  - Musculoskeletal stiffness [None]
  - Fatigue [None]

NARRATIVE: CASE EVENT DATE: 20150209
